FAERS Safety Report 12282439 (Version 2)
Quarter: 2016Q2

REPORT INFORMATION
  Report Type: Spontaneous
  Country: FR (occurrence: FR)
  Receive Date: 20160419
  Receipt Date: 20160422
  Transmission Date: 20160815
  Serious: Yes (Disabling, Other)
  Sender: FDA-Public Use
  Company Number: FR-MYLANLABS-2016M1016169

PATIENT

DRUGS (5)
  1. MYLAN-QUETIAPINE [Suspect]
     Active Substance: QUETIAPINE
     Dosage: UNK, QD
     Route: 048
     Dates: start: 201601, end: 20160215
  2. SULFARLEM [Concomitant]
     Active Substance: ANETHOLTRITHION
     Indication: PRODUCT USED FOR UNKNOWN INDICATION
     Dosage: UNK
  3. MYLAN-QUETIAPINE [Suspect]
     Active Substance: QUETIAPINE
     Indication: BIPOLAR DISORDER
     Dosage: UNK UNK, QD
     Route: 048
     Dates: start: 201511
  4. TRILEPTAL [Concomitant]
     Active Substance: OXCARBAZEPINE
     Indication: BIPOLAR DISORDER
     Dosage: 300 MG, BID
     Route: 048
     Dates: start: 2002
  5. MYLAN-QUETIAPINE [Suspect]
     Active Substance: QUETIAPINE
     Dosage: UNK, QD
     Route: 048
     Dates: start: 20160408, end: 20160411

REACTIONS (3)
  - Product substitution issue [Unknown]
  - Micturition urgency [Recovering/Resolving]
  - Diarrhoea [Recovering/Resolving]

NARRATIVE: CASE EVENT DATE: 201604
